FAERS Safety Report 7596025-8 (Version None)
Quarter: 2011Q3

REPORT INFORMATION
  Report Type: 
  Country: None (occurrence: None)
  Receive Date: 20110707
  Receipt Date: 20110628
  Transmission Date: 20111222
  Serious: Yes (Other)
  Sender: FDA-Public Use
  Company Number: PHEH2004US08039

PATIENT
  Sex: Male

DRUGS (23)
  1. NEO-SYNEPHRINE OPHTHALMICS [Concomitant]
  2. DIPHENHYDRAMINE HCL [Concomitant]
  3. MAGNESIUM SULFATE [Concomitant]
  4. MAALOX [Concomitant]
  5. LISINOPRIL [Concomitant]
  6. AMBIEN [Concomitant]
     Dosage: PRN
  7. AMOXICILLIN [Concomitant]
     Indication: OPEN WOUND
     Dosage: 500 MG, TID FOR LIFE
     Dates: start: 20040224
  8. SUTENT [Concomitant]
  9. NEURONTIN [Concomitant]
  10. AMLODIPINE BESYLATE [Concomitant]
  11. ALLOPURINOL [Concomitant]
     Indication: GOUT
     Dosage: UNK, QD
  12. MYDRIACYL [Concomitant]
  13. DOCUSATE [Concomitant]
  14. ZOMETA [Suspect]
     Indication: METASTASES TO BONE
     Dosage: 4 MG MONTHLY
     Route: 042
     Dates: start: 20020906, end: 20040604
  15. MULTI-VITAMINS [Concomitant]
     Dosage: UNK, QD
  16. ZOVIRAX [Concomitant]
  17. TORADOL [Concomitant]
  18. OXYCODONE HCL [Concomitant]
  19. KETOROLAC TROMETHAMINE [Concomitant]
  20. ACETAMINOPHEN [Concomitant]
  21. NIZATIDINE [Concomitant]
  22. ZOMETA [Suspect]
     Dosage: UNK
  23. BISACODYL [Concomitant]

REACTIONS (95)
  - DECREASED INTEREST [None]
  - GENERAL PHYSICAL HEALTH DETERIORATION [None]
  - IRITIS [None]
  - DRY EYE [None]
  - ANAEMIA [None]
  - EPISTAXIS [None]
  - URINARY TRACT INFECTION [None]
  - NEPHROLITHIASIS [None]
  - SEBORRHOEIC DERMATITIS [None]
  - COLON CANCER [None]
  - CONFUSIONAL STATE [None]
  - DYSPNOEA [None]
  - GASTRIC DISORDER [None]
  - PAIN [None]
  - GINGIVAL DISORDER [None]
  - LACRIMATION INCREASED [None]
  - HYPERSENSITIVITY [None]
  - METASTASES TO LIVER [None]
  - HEPATIC STEATOSIS [None]
  - NEURALGIA [None]
  - SPLENIC GRANULOMA [None]
  - MELANOCYTIC NAEVUS [None]
  - LEFT VENTRICULAR HYPERTROPHY [None]
  - HYPOTHYROIDISM [None]
  - LUNG NEOPLASM [None]
  - TYPE 2 DIABETES MELLITUS [None]
  - SEXUAL DYSFUNCTION [None]
  - CORONARY ARTERY DISEASE [None]
  - NEOPLASM MALIGNANT [None]
  - ARTHRITIS [None]
  - DIZZINESS [None]
  - BONE DISORDER [None]
  - OPEN WOUND [None]
  - ANXIETY [None]
  - EYE IRRITATION [None]
  - VISION BLURRED [None]
  - MYOPIA [None]
  - WEIGHT DECREASED [None]
  - SPINAL OSTEOARTHRITIS [None]
  - EAR INFECTION [None]
  - GASTROENTERITIS [None]
  - PERITONEAL ADHESIONS [None]
  - CHOLECYSTITIS CHRONIC [None]
  - BONE PAIN [None]
  - HYPOCALCAEMIA [None]
  - MUSCLE TWITCHING [None]
  - INFECTION [None]
  - EMOTIONAL DISTRESS [None]
  - OCULAR HYPERAEMIA [None]
  - ASTHENOPIA [None]
  - HAEMORRHOIDS [None]
  - DIVERTICULUM [None]
  - LYMPHADENOPATHY MEDIASTINAL [None]
  - DYSPHONIA [None]
  - INGROWING NAIL [None]
  - PERIORBITAL OEDEMA [None]
  - INGUINAL HERNIA [None]
  - TOOTH FRACTURE [None]
  - GASTROOESOPHAGEAL REFLUX DISEASE [None]
  - PARAESTHESIA [None]
  - GRANULOMATOUS LIVER DISEASE [None]
  - BENIGN PROSTATIC HYPERPLASIA [None]
  - STOMATITIS [None]
  - CEREBRAL SMALL VESSEL ISCHAEMIC DISEASE [None]
  - AORTIC ANEURYSM [None]
  - HYPERLIPIDAEMIA [None]
  - METASTASES TO LYMPH NODES [None]
  - PLEURAL EFFUSION [None]
  - OSTEONECROSIS OF JAW [None]
  - HYPOPHAGIA [None]
  - SWELLING [None]
  - EYE PAIN [None]
  - PRESBYOPIA [None]
  - INTERVERTEBRAL DISC PROTRUSION [None]
  - DERMAL CYST [None]
  - RECTAL HAEMORRHAGE [None]
  - TYMPANIC MEMBRANE PERFORATION [None]
  - SINUS BRADYCARDIA [None]
  - MEMORY IMPAIRMENT [None]
  - HYPOALBUMINAEMIA [None]
  - BLOOD URINE PRESENT [None]
  - OSTEOMYELITIS [None]
  - MOUTH ULCERATION [None]
  - WOUND SECRETION [None]
  - IMPAIRED HEALING [None]
  - DEFORMITY [None]
  - ARTHRALGIA [None]
  - MIGRAINE [None]
  - GASTROENTERITIS RADIATION [None]
  - CARDIAC DISORDER [None]
  - ASTHENIA [None]
  - DEAFNESS [None]
  - PROTEINURIA [None]
  - FATIGUE [None]
  - DYSKINESIA [None]
